FAERS Safety Report 11269742 (Version 1)
Quarter: 2015Q3

REPORT INFORMATION
  Report Type: Spontaneous
  Country: FR (occurrence: FR)
  Receive Date: 20150714
  Receipt Date: 20150714
  Transmission Date: 20151125
  Serious: Yes (Other)
  Sender: FDA-Public Use
  Company Number: FR-JNJFOC-20150620239

PATIENT
  Age: 30 Year
  Sex: Female
  Weight: 48 kg

DRUGS (2)
  1. REMICADE [Suspect]
     Active Substance: INFLIXIMAB
     Indication: CROHN^S DISEASE
     Dosage: 3 YEARS AGO
     Route: 042
  2. REMICADE [Suspect]
     Active Substance: INFLIXIMAB
     Indication: CROHN^S DISEASE
     Dosage: 3 YEARS AGO
     Route: 042
     Dates: start: 2012

REACTIONS (3)
  - Pigmentation disorder [Not Recovered/Not Resolved]
  - Skin discolouration [Unknown]
  - Crohn^s disease [Unknown]

NARRATIVE: CASE EVENT DATE: 201505
